FAERS Safety Report 8346011-5 (Version None)
Quarter: 2012Q2

REPORT INFORMATION
  Report Type: 
  Country: None (occurrence: None)
  Receive Date: 20120509
  Receipt Date: 20120119
  Transmission Date: 20120825
  Serious: Yes (Other)
  Sender: FDA-Public Use
  Company Number: US-PFIZER INC-2012111008

PATIENT

DRUGS (3)
  1. GEODON [Suspect]
     Indication: BIPOLAR DISORDER
     Dosage: UNK
  2. CYMBALTA [Suspect]
     Dosage: UNK
  3. GEODON [Suspect]
     Indication: DEPRESSION

REACTIONS (1)
  - DIABETES MELLITUS [None]
